FAERS Safety Report 9340763 (Version 1)
Quarter: 2013Q2

REPORT INFORMATION
  Report Type: Spontaneous
  Country: ES (occurrence: ES)
  Receive Date: 20130610
  Receipt Date: 20130610
  Transmission Date: 20140414
  Serious: Yes (Other)
  Sender: FDA-Public Use
  Company Number: PHHY2013ES057335

PATIENT
  Age: 75 Year
  Sex: Male

DRUGS (3)
  1. ENALAPRIL [Suspect]
     Dosage: 20 MG, PER DAY
  2. AMLODIPINE [Concomitant]
  3. SIMVASTATIN [Concomitant]

REACTIONS (12)
  - Neutrophilia [Unknown]
  - Angioedema [Recovering/Resolving]
  - Swollen tongue [Recovering/Resolving]
  - Sialoadenitis [Recovering/Resolving]
  - Dysphagia [Recovering/Resolving]
  - Palatal disorder [Recovering/Resolving]
  - Oropharyngeal swelling [Recovering/Resolving]
  - Odynophagia [Recovering/Resolving]
  - Oedema [Recovering/Resolving]
  - Glossodynia [Recovering/Resolving]
  - Dysphonia [Recovering/Resolving]
  - Leukocytosis [Unknown]
